FAERS Safety Report 5914189-6 (Version None)
Quarter: 2008Q4

REPORT INFORMATION
  Report Type: 
  Country: None (occurrence: None)
  Receive Date: 20081009
  Receipt Date: 20080929
  Transmission Date: 20090506
  Serious: Yes (Disabling, Other)
  Sender: FDA-Public Use
  Company Number: US-ELI_LILLY_AND_COMPANY-US200805005488

PATIENT
  Sex: Male

DRUGS (6)
  1. CYMBALTA [Suspect]
     Indication: OSTEOARTHRITIS
     Dosage: 30 MG, UNK
     Dates: start: 20070901, end: 20070101
  2. CYMBALTA [Suspect]
     Dosage: 60 MG, EACH MORNING
     Dates: start: 20070101, end: 20080922
  3. NEURONTIN [Concomitant]
     Indication: OSTEOARTHRITIS
  4. PERCOCET [Concomitant]
  5. KLONOPIN [Concomitant]
  6. DEXEDRIN [Concomitant]
     Indication: ASTHENIA

REACTIONS (12)
  - ACTIVITIES OF DAILY LIVING IMPAIRED [None]
  - BLISTER [None]
  - CONFUSIONAL STATE [None]
  - ERECTILE DYSFUNCTION [None]
  - FATIGUE [None]
  - FEELING HOT [None]
  - HYPERHIDROSIS [None]
  - MEMORY IMPAIRMENT [None]
  - PAIN [None]
  - RASH [None]
  - SKIN EXFOLIATION [None]
  - TINNITUS [None]
